FAERS Safety Report 9174436 (Version 2)
Quarter: 2013Q2

REPORT INFORMATION
  Report Type: Spontaneous
  Country: RS (occurrence: RS)
  Receive Date: 20130320
  Receipt Date: 20130415
  Transmission Date: 20140414
  Serious: Yes (Other)
  Sender: FDA-Public Use
  Company Number: PHHY2013RS026876

PATIENT
  Age: 70 Year
  Sex: Male

DRUGS (10)
  1. EXELON PATCH [Suspect]
     Indication: DEMENTIA
     Dosage: 4.6 MG/ 24 HOURS, DAILY
     Route: 062
     Dates: start: 20130313
  2. EXELON PATCH [Suspect]
     Dosage: 9.5 MG/ 24 HOURS, DAILY
     Route: 062
  3. EXELON PATCH [Suspect]
     Dosage: 4.6 MG/ 24 HOURS, DAILY
     Route: 062
     Dates: start: 20130326
  4. LORAZEPAM [Concomitant]
     Dosage: 2.5 MG, QD
     Route: 048
     Dates: start: 20130307
  5. DIUNORM [Concomitant]
     Dosage: 12.5 MG, QD
     Route: 048
     Dates: start: 20130314
  6. MADOPAR [Concomitant]
     Dosage: 250 MG, (4X1/4 TBL PER DAY)
     Route: 048
     Dates: start: 20130307
  7. COMTAN [Concomitant]
     Dosage: 200 MG, QID (4X1 TBL)
     Route: 048
     Dates: start: 20130313
  8. SPALMOTIL [Concomitant]
     Dosage: 2 MG, ONCE DAILY
     Route: 048
     Dates: start: 20130307
  9. AMINOFILIN//AMINOPHYLLINE [Concomitant]
     Dosage: (TWICE DAILY)
     Route: 048
     Dates: start: 20130314
  10. BERODUAL [Concomitant]
     Dosage: 2 DF, (2X2 PAF DAILY)

REACTIONS (3)
  - Confusional state [Recovered/Resolved]
  - Disorientation [Recovered/Resolved]
  - Incoherent [Unknown]
